FAERS Safety Report 21665790 (Version 3)
Quarter: 2023Q1

REPORT INFORMATION
  Report Type: Report from Study
  Country: US (occurrence: US)
  Receive Date: 20221201
  Receipt Date: 20230207
  Transmission Date: 20230417
  Serious: Yes (Other)
  Sender: FDA-Public Use
  Company Number: US-ABBVIE-4218971

PATIENT
  Sex: Female

DRUGS (1)
  1. HUMIRA [Suspect]
     Active Substance: ADALIMUMAB
     Indication: Colitis ulcerative
     Dosage: CITRATE FREE
     Route: 058

REACTIONS (14)
  - Cataract [Unknown]
  - Inflammation [Unknown]
  - Hernia [Unknown]
  - Spondylitis [Unknown]
  - Urinary tract infection [Unknown]
  - Fatigue [Recovering/Resolving]
  - Back injury [Unknown]
  - Depressed mood [Unknown]
  - Stress [Unknown]
  - Intervertebral disc injury [Unknown]
  - Laboratory test abnormal [Unknown]
  - Asthenia [Recovering/Resolving]
  - Scoliosis [Unknown]
  - Osteoporosis [Unknown]

NARRATIVE: CASE EVENT DATE: 20220101
